FAERS Safety Report 7054759-8 (Version None)
Quarter: 2010Q4

REPORT INFORMATION
  Report Type: 
  Country: None (occurrence: None)
  Receive Date: 20101018
  Receipt Date: 20101006
  Transmission Date: 20110411
  Serious: Yes (Hospitalization)
  Sender: FDA-Public Use
  Company Number: UTC-001522

PATIENT
  Age: 58 Year
  Sex: Female
  Weight: 62.3 kg

DRUGS (5)
  1. TYVASO [Suspect]
     Dosage: INHALATION
     Route: 055
     Dates: start: 20100617
  2. TRACLEER [Concomitant]
  3. COUMADIN [Concomitant]
  4. VIAGRA [Concomitant]
  5. DIGOXIN [Concomitant]

REACTIONS (1)
  - CARDIAC FAILURE CONGESTIVE [None]
